FAERS Safety Report 21954475 (Version 1)
Quarter: 2023Q1

REPORT INFORMATION
  Report Type: Spontaneous
  Country: TW (occurrence: TW)
  Receive Date: 20230205
  Receipt Date: 20230205
  Transmission Date: 20230417
  Serious: Yes (Death, Hospitalization)
  Sender: FDA-Public Use
  Company Number: TW-JNJFOC-20230164671

PATIENT
  Age: 85 Year
  Sex: Female

DRUGS (1)
  1. SIMPONI [Suspect]
     Active Substance: GOLIMUMAB
     Indication: Rheumatoid arthritis
     Route: 058
     Dates: start: 20200716, end: 20221220

REACTIONS (3)
  - Hypotension [Fatal]
  - Cerebral haemorrhage [Unknown]
  - Road traffic accident [Unknown]

NARRATIVE: CASE EVENT DATE: 20230117
